FAERS Safety Report 12621411 (Version 4)
Quarter: 2016Q4

REPORT INFORMATION
  Report Type: Spontaneous
  Country: US (occurrence: US)
  Receive Date: 20160804
  Receipt Date: 20161101
  Transmission Date: 20170207
  Serious: Yes (Hospitalization, Other)
  Sender: FDA-Public Use
  Company Number: US-PFIZER INC-2016372646

PATIENT
  Age: 79 Year
  Sex: Female
  Weight: 59.86 kg

DRUGS (7)
  1. CALCIUM [Concomitant]
     Active Substance: CALCIUM
     Dosage: UNK
  2. SENNA [Concomitant]
     Active Substance: SENNA LEAF\SENNOSIDES\SENNOSIDES A AND B
     Indication: FAECES SOFT
     Dosage: UNK
  3. SUTENT [Suspect]
     Active Substance: SUNITINIB MALATE
     Indication: RENAL CANCER STAGE IV
     Dosage: 50 MG, CYCLIC (50 MG -28 DAYS ON/14 DAYS OFF)
     Dates: start: 20160715, end: 20160803
  4. LOVASTATIN. [Concomitant]
     Active Substance: LOVASTATIN
  5. NAPROSYN [Concomitant]
     Active Substance: NAPROXEN
     Dosage: UNK, AS NEEDED
  6. MEGACE [Concomitant]
     Active Substance: MEGESTROL ACETATE
     Indication: APPETITE DISORDER
     Dosage: UNK
  7. TYLENOL [Concomitant]
     Active Substance: ACETAMINOPHEN
     Dosage: UNK, AS NEEDED (2 OR 3 A DAY )

REACTIONS (11)
  - Cardiac failure congestive [Unknown]
  - Dry mouth [Unknown]
  - Oral pain [Unknown]
  - Chapped lips [Unknown]
  - Uterine infection [Unknown]
  - Fatigue [Unknown]
  - Platelet count decreased [Recovering/Resolving]
  - Feeling abnormal [Unknown]
  - Appetite disorder [Recovered/Resolved]
  - Dehydration [Recovering/Resolving]
  - Somnolence [Recovered/Resolved]

NARRATIVE: CASE EVENT DATE: 20160730
